FAERS Safety Report 9415410 (Version 1)
Quarter: 2013Q3

REPORT INFORMATION
  Report Type: Spontaneous
  Country: US (occurrence: US)
  Receive Date: 20130723
  Receipt Date: 20130723
  Transmission Date: 20140515
  Serious: Yes (Other)
  Sender: FDA-Public Use
  Company Number: US-ELI_LILLY_AND_COMPANY-US201307004578

PATIENT
  Sex: 0

DRUGS (18)
  1. CYMBALTA [Suspect]
     Indication: DEPRESSION
     Dosage: 60 MG, BID
     Route: 048
     Dates: start: 20130621
  2. HUMULIN NPH [Suspect]
     Indication: TYPE 2 DIABETES MELLITUS
     Dosage: 20 IU, EACH MORNING
     Route: 058
     Dates: start: 20120621
  3. HUMULIN NPH [Suspect]
     Dosage: 10 IU, EACH EVENING
     Route: 058
     Dates: start: 20120621
  4. HUMULIN NPH [Suspect]
     Dosage: 2 IU, EACH EVENING
     Route: 058
     Dates: start: 20120712
  5. HUMULIN NPH [Suspect]
     Dosage: 18 IU, EACH MORNING
     Dates: start: 20121101
  6. HUMALOG LISPRO [Suspect]
     Dosage: UNK, UNKNOWN
     Dates: start: 20120621
  7. ZOLOFT [Concomitant]
     Indication: DEPRESSION
     Dosage: UNK, UNKNOWN
     Dates: start: 201211
  8. INSULIN ASPART [Concomitant]
     Dosage: 4 IU, EACH MORNING
  9. INSULIN ASPART [Concomitant]
     Dosage: 4 IU, QD
  10. INSULIN ASPART [Concomitant]
     Dosage: 4 IU, QD
  11. PRENATAL                           /00231801/ [Concomitant]
     Dosage: 1 DF, UNKNOWN
     Dates: start: 20120809
  12. ADVAIR [Concomitant]
     Dosage: 1 DF, UNKNOWN
     Dates: start: 20120712
  13. NORVASC [Concomitant]
     Dosage: 10 MG, UNKNOWN
     Dates: start: 20100511
  14. PROAIR HFA [Concomitant]
     Dosage: UNK
     Dates: start: 20121129
  15. METFORMIN [Concomitant]
     Dosage: 500 MG, QD
  16. PULMICORT [Concomitant]
     Indication: ASTHMA
  17. ALBUTEROL                          /00139501/ [Concomitant]
  18. ABILIFY [Concomitant]
     Dosage: 5 MG, QD
     Route: 048
     Dates: start: 20120610

REACTIONS (3)
  - Foetal growth restriction [Unknown]
  - Pericardial effusion [Unknown]
  - Foetal exposure during pregnancy [Unknown]
